FAERS Safety Report 5967649-6 (Version None)
Quarter: 2008Q4

REPORT INFORMATION
  Report Type: 
  Country: None (occurrence: None)
  Receive Date: 20081126
  Receipt Date: 20081118
  Transmission Date: 20090506
  Serious: Yes (Hospitalization, Other)
  Sender: FDA-Public Use
  Company Number: PHHY2008JP27604

PATIENT
  Age: 89 Year
  Sex: Male

DRUGS (9)
  1. VOLTAREN [Suspect]
     Indication: ANTIPYRESIS
     Dosage: UNK
     Route: 054
     Dates: start: 20081029
  2. HEPARIN SODIUM [Concomitant]
     Dosage: 5 ML, UNK
     Dates: start: 20081029
  3. LACTEC [Concomitant]
     Dosage: 500 ML, UNK
  4. SOLITA T [Concomitant]
     Dosage: 500 ML, UNK
     Dates: start: 20081029
  5. NEOLAMIN 3B INJ. [Concomitant]
     Dosage: 10 ML, UNK
     Dates: start: 20081029
  6. PACETCOOL [Concomitant]
     Dosage: UNK
     Dates: start: 20081029
  7. XYLOCAINE [Concomitant]
  8. ADONA [Concomitant]
  9. TRANSAMIN [Concomitant]

REACTIONS (6)
  - BLOOD CREATININE INCREASED [None]
  - BLOOD UREA INCREASED [None]
  - EPISTAXIS [None]
  - HYPOTENSION [None]
  - IDIOPATHIC THROMBOCYTOPENIC PURPURA [None]
  - PLATELET COUNT DECREASED [None]
